FAERS Safety Report 16710116 (Version 2)
Quarter: 2019Q3

REPORT INFORMATION
  Report Type: Spontaneous
  Country: US (occurrence: US)
  Receive Date: 20190816
  Receipt Date: 20190913
  Transmission Date: 20191004
  Serious: Yes (Other)
  Sender: FDA-Public Use
  Company Number: US-ASTRAZENECA-2019SF04771

PATIENT
  Age: 23230 Day
  Sex: Female
  Weight: 77.1 kg

DRUGS (2)
  1. FASENRA [Suspect]
     Active Substance: BENRALIZUMAB
     Indication: ASTHMA
     Route: 058
     Dates: start: 20190715, end: 20190716
  2. SYMBICORT [Suspect]
     Active Substance: BUDESONIDE\FORMOTEROL FUMARATE DIHYDRATE
     Indication: ASTHMA
     Dosage: 2 PUFFS TWICE DAILY
     Route: 055

REACTIONS (30)
  - Oropharyngeal pain [Unknown]
  - Dyspnoea [Not Recovered/Not Resolved]
  - Back pain [Unknown]
  - Insomnia [Unknown]
  - Loss of consciousness [Recovered/Resolved]
  - Disorientation [Recovered/Resolved]
  - Rhinorrhoea [Unknown]
  - Swelling of eyelid [Unknown]
  - Hot flush [Unknown]
  - Rhinorrhoea [Recovered/Resolved]
  - Abdominal pain upper [Recovered/Resolved]
  - Syncope [Recovered/Resolved]
  - Neuralgia [Unknown]
  - Chest discomfort [Unknown]
  - Hyperhidrosis [Unknown]
  - Glaucoma [Not Recovered/Not Resolved]
  - Swelling [Unknown]
  - Pain in extremity [Unknown]
  - Pharyngeal swelling [Unknown]
  - Palpitations [Recovered/Resolved]
  - Intentional product misuse [Not Recovered/Not Resolved]
  - Dysphonia [Not Recovered/Not Resolved]
  - Headache [Unknown]
  - Diarrhoea [Recovered/Resolved]
  - Blood pressure decreased [Unknown]
  - Adverse drug reaction [Unknown]
  - Muscle spasms [Unknown]
  - Oropharyngeal discomfort [Recovered/Resolved]
  - Feeling hot [Unknown]
  - Cold sweat [Unknown]

NARRATIVE: CASE EVENT DATE: 20190715
